FAERS Safety Report 20930087 (Version 2)
Quarter: 2022Q3

REPORT INFORMATION
  Report Type: Report from Study
  Country: GR (occurrence: None)
  Receive Date: 20220608
  Receipt Date: 20220705
  Transmission Date: 20221026
  Serious: Yes (Hospitalization)
  Sender: FDA-Public Use
  Company Number: GR-ROCHE-2143973

PATIENT
  Age: 57 Year
  Sex: Female
  Weight: 60 kg

DRUGS (14)
  1. ATEZOLIZUMAB [Suspect]
     Active Substance: ATEZOLIZUMAB
     Indication: Malignant melanoma
     Dosage: DATE OF MOST RECENT DOSE OF BLINDED ATEZOLIZUMAB PRIOR TO AE FIRST EPISODE OF FEVER ONSET 05/FEB/201
     Route: 042
     Dates: start: 20171211
  2. COBIMETINIB [Suspect]
     Active Substance: COBIMETINIB
     Indication: Malignant melanoma
     Dosage: ON DAYS 1 TO 21 (AS PER PROTOCOL)?DATE OF MOST RECENT DOSE OF COBIMETINIB OF 60 MG PRIOR TO AE FIRST
     Route: 048
     Dates: start: 20171113
  3. VEMURAFENIB [Suspect]
     Active Substance: VEMURAFENIB
     Indication: Malignant melanoma
     Dosage: DATE OF MOST RECENT DOSE OF VEMURAFENIB (8 TABLETS) PRIOR TO AE FIRST EPISODE OF FEVER ONSET 05/FEB/
     Route: 048
     Dates: start: 20171113
  4. LEVOTHYROXINE [Concomitant]
     Active Substance: LEVOTHYROXINE
     Indication: Hypothyroidism
     Dates: start: 201308
  5. EFFEXOR [Concomitant]
     Active Substance: VENLAFAXINE HYDROCHLORIDE
     Indication: Depression
     Dates: start: 201511
  6. MEFENAMIC ACID [Concomitant]
     Active Substance: MEFENAMIC ACID
     Indication: Arthralgia
     Dates: start: 20171209
  7. MEFENAMIC ACID [Concomitant]
     Active Substance: MEFENAMIC ACID
     Indication: Pyrexia
     Dates: start: 20180120, end: 20180130
  8. MEFENAMIC ACID [Concomitant]
     Active Substance: MEFENAMIC ACID
     Indication: Arthralgia
  9. MEFENAMIC ACID [Concomitant]
     Active Substance: MEFENAMIC ACID
     Indication: Musculoskeletal pain
  10. NEVANAC [Concomitant]
     Active Substance: NEPAFENAC
     Indication: Central serous chorioretinopathy
     Dates: start: 20180601
  11. ROCEPHIN [Concomitant]
     Active Substance: CEFTRIAXONE SODIUM
     Indication: Acute kidney injury
     Dates: start: 20220530, end: 20220603
  12. LEVOFLOXACIN [Concomitant]
     Active Substance: LEVOFLOXACIN
     Indication: Acute kidney injury
     Dates: start: 20220604, end: 20220610
  13. PREDNEAU [Concomitant]
     Indication: Arthritis
     Route: 048
     Dates: start: 20210729
  14. FERROUS SULFATE [Concomitant]
     Active Substance: FERROUS SULFATE
     Indication: Anaemia
     Dates: start: 20210217

REACTIONS (3)
  - Pyrexia [Recovered/Resolved]
  - Acute kidney injury [Recovered/Resolved]
  - Central serous chorioretinopathy [Recovered/Resolved]

NARRATIVE: CASE EVENT DATE: 20180206
